FAERS Safety Report 5487764-3 (Version None)
Quarter: 2007Q4

REPORT INFORMATION
  Report Type: 
  Country: None (occurrence: None)
  Receive Date: 20071017
  Receipt Date: 20071008
  Transmission Date: 20080405
  Serious: Yes (Other)
  Sender: FDA-Public Use
  Company Number: US-KINGPHARMUSA00001-K200701301

PATIENT

DRUGS (3)
  1. ALTACE [Suspect]
     Indication: BLOOD PRESSURE
     Dosage: 6.25 MG, QD
     Route: 048
     Dates: start: 20070917, end: 20070918
  2. ALTACE [Suspect]
     Dosage: 7.5 MG, QD
     Route: 048
  3. ALTACE [Suspect]
     Dosage: 5 MG, QD
     Route: 048

REACTIONS (6)
  - ASTHENIA [None]
  - BLOOD PRESSURE INCREASED [None]
  - DIARRHOEA [None]
  - DIZZINESS [None]
  - DYSPEPSIA [None]
  - MALAISE [None]
